FAERS Safety Report 21103979 (Version 1)
Quarter: 2022Q3

REPORT INFORMATION
  Report Type: Spontaneous
  Country: LT (occurrence: LT)
  Receive Date: 20220720
  Receipt Date: 20220720
  Transmission Date: 20221026
  Serious: Yes (Other)
  Sender: FDA-Public Use
  Company Number: LT-SUN PHARMACEUTICAL INDUSTRIES LTD-2022R1-344756

PATIENT
  Age: 41 Year
  Sex: Male

DRUGS (2)
  1. DIAZEPAM [Suspect]
     Active Substance: DIAZEPAM
     Indication: Sedation
     Dosage: UNK
     Route: 042
  2. MORPHINE [Suspect]
     Active Substance: MORPHINE
     Indication: Sedation
     Dosage: UNK
     Route: 042

REACTIONS (2)
  - Drug ineffective [Not Recovered/Not Resolved]
  - Status epilepticus [Unknown]
